FAERS Safety Report 5413717-7 (Version None)
Quarter: 2007Q3

REPORT INFORMATION
  Report Type: 
  Country: None (occurrence: None)
  Receive Date: 20070814
  Receipt Date: 20070806
  Transmission Date: 20080115
  Serious: Yes (Hospitalization)
  Sender: FDA-Public Use
  Company Number: B0483129A

PATIENT
  Age: 33 Year
  Sex: Female

DRUGS (5)
  1. SERETIDE [Suspect]
     Indication: DRUG USE FOR UNKNOWN INDICATION
     Route: 055
  2. ADRENALINE [Concomitant]
  3. PREDNISONE TAB [Concomitant]
  4. ANTIDEPRESSANT [Concomitant]
  5. BRICANYL [Concomitant]

REACTIONS (6)
  - CHEST DISCOMFORT [None]
  - EYE SWELLING [None]
  - HYPERSENSITIVITY [None]
  - RASH [None]
  - RASH MACULAR [None]
  - URTICARIA [None]
